FAERS Safety Report 7325641 (Version 1)
Quarter: 2020Q3

REPORT INFORMATION
  Report Type: Report from Study
  Country: CA (occurrence: CA)
  Receive Date: 20100319
  Receipt Date: 20100319
  Transmission Date: 20201105
  Serious: Yes (Hospitalization)
  Sender: FDA-Public Use
  Company Number: CA-JNJFOC-20080106075

PATIENT
  Age: 56 Year
  Sex: Male
  Weight: 140.8 kg

DRUGS (9)
  1. CNTO 1275 [Suspect]
     Active Substance: USTEKINUMAB
     Dosage: WEEK 88 DOSE 90 MG
     Route: 058
  2. CNTO 1275 [Suspect]
     Active Substance: USTEKINUMAB
     Dosage: WEEK 28 DOSE 90 MG
     Route: 058
  3. BETADERM [Concomitant]
     Active Substance: BETAMETHASONE VALERATE
     Route: 061
  4. ATARAX [Concomitant]
     Active Substance: HYDROXYZINE HYDROCHLORIDE
     Route: 048
  5. CNTO 1275 [Suspect]
     Active Substance: USTEKINUMAB
     Dosage: WEEK 84 DOSE 90 MG
     Route: 058
  6. CNTO 1275 [Suspect]
     Active Substance: USTEKINUMAB
     Dosage: WEEK 0 DOSE 90 MG
     Route: 058
  7. CNTO 1275 [Suspect]
     Active Substance: USTEKINUMAB
     Indication: PSORIASIS
     Dosage: WEEK 16 DOSE 90 MG
     Route: 058
  8. CNTO 1275 [Suspect]
     Active Substance: USTEKINUMAB
     Dosage: WEEK 4 DOSE 90 MG
     Route: 058
  9. ASPIRIN. [Concomitant]
     Active Substance: ASPIRIN
     Route: 048

REACTIONS (1)
  - Bronchitis [Recovered/Resolved]

NARRATIVE: CASE EVENT DATE: 20071215
